FAERS Safety Report 6622261-0 (Version None)
Quarter: 2010Q1

REPORT INFORMATION
  Report Type: 
  Country: None (occurrence: None)
  Receive Date: 20100305
  Receipt Date: 20100223
  Transmission Date: 20100710
  Serious: Yes (Other)
  Sender: FDA-Public Use
  Company Number: 007618

PATIENT
  Age: 68 Year
  Sex: Male

DRUGS (3)
  1. ROTIGOTINE (ROTIGOTINE) [Suspect]
     Indication: PARKINSON'S DISEASE
     Dates: start: 20091209
  2. MADOPAR [Concomitant]
  3. SINEMET [Concomitant]

REACTIONS (4)
  - AGITATION [None]
  - ANXIETY [None]
  - HALLUCINATION [None]
  - SLEEP DISORDER [None]
